FAERS Safety Report 9084842 (Version 1)
Quarter: 2013Q1

REPORT INFORMATION
  Report Type: Report from Study
  Country: US (occurrence: US)
  Receive Date: 20130131
  Receipt Date: 20130131
  Transmission Date: 20140127
  Serious: No
  Sender: FDA-Public Use
  Company Number: US-ABBOTT-12P-163-1014384-00

PATIENT
  Sex: Female
  Weight: 65.83 kg

DRUGS (3)
  1. HUMIRA [Suspect]
     Indication: RHEUMATOID ARTHRITIS
  2. METHOTREXATE BIGMAR [Concomitant]
     Indication: RHEUMATOID ARTHRITIS
  3. TYLENOL (NON-ABBOTT) [Concomitant]
     Indication: PAIN

REACTIONS (2)
  - Poor quality drug administered [Not Recovered/Not Resolved]
  - Incorrect storage of drug [Not Recovered/Not Resolved]
